FAERS Safety Report 23424679 (Version 1)
Quarter: 2024Q1

REPORT INFORMATION
  Report Type: Spontaneous
  Country: MY (occurrence: MY)
  Receive Date: 20240120
  Receipt Date: 20240120
  Transmission Date: 20240410
  Serious: Yes (Other)
  Sender: FDA-Public Use
  Company Number: MY-JNJFOC-20240145154

PATIENT

DRUGS (1)
  1. SIMPONI [Suspect]
     Active Substance: GOLIMUMAB
     Indication: Rheumatoid arthritis
     Route: 058

REACTIONS (4)
  - Hepatic cirrhosis [Unknown]
  - Sepsis [Recovered/Resolved]
  - Rheumatoid arthritis [Unknown]
  - Infection [Unknown]

NARRATIVE: CASE EVENT DATE: 20240101
